FAERS Safety Report 5237416-X (Version None)
Quarter: 2007Q1

REPORT INFORMATION
  Report Type: 
  Country: None (occurrence: None)
  Receive Date: 20070213
  Receipt Date: 20070206
  Transmission Date: 20070707
  Serious: Yes (Congenital Anomaly, Other)
  Sender: FDA-Public Use
  Company Number: ZA-BOEHRINGER INGELHEIM PHARMACEUTICALS, INC.-2006-BP-13321BP

PATIENT

DRUGS (5)
  1. VIRAMUNE [Suspect]
     Route: 015
     Dates: start: 20051229
  2. SUSTIVA [Suspect]
     Route: 015
     Dates: start: 20050223, end: 20051229
  3. ZERIT [Suspect]
     Route: 015
     Dates: start: 20050223, end: 20051229
  4. EPIVIR [Suspect]
     Route: 015
     Dates: start: 20050223, end: 20051229
  5. RETROVIR [Suspect]
     Route: 015
     Dates: start: 20051229

REACTIONS (3)
  - CONGENITAL ANOMALY [None]
  - NOSE DEFORMITY [None]
  - TALIPES [None]
